FAERS Safety Report 4301008-7 (Version None)
Quarter: 2004Q1

REPORT INFORMATION
  Report Type: 
  Country: None (occurrence: None)
  Receive Date: 20040219
  Receipt Date: 20040210
  Transmission Date: 20041129
  Serious: Yes (Hospitalization, Disabling)
  Sender: FDA-Public Use
  Company Number: 2004SE00287

PATIENT
  Age: 55 Year
  Sex: Female
  Weight: 67 kg

DRUGS (8)
  1. BLOPRESS [Suspect]
     Indication: HYPERTENSION
     Dosage: 4 MG DAILY PO
     Dates: end: 20030521
  2. ACECOL [Suspect]
     Indication: DIABETIC NEPHROPATHY
     Dosage: 2 MG DAILY PO
     Dates: start: 20021004, end: 20030521
  3. BASEN [Concomitant]
  4. TAKEPRON [Concomitant]
  5. DOXAZOSIN MESYLATE [Concomitant]
  6. NATEGLINIDE [Concomitant]
  7. CALCIUM CHANNEL BLOCKERS [Concomitant]
  8. PROPRANOLOL HYDROCHLORIDE [Concomitant]

REACTIONS (6)
  - BLOOD PRESSURE INADEQUATELY CONTROLLED [None]
  - COUGH [None]
  - LARYNGEAL OEDEMA [None]
  - NASOPHARYNGITIS [None]
  - PHARYNGEAL OEDEMA [None]
  - PROTEINURIA [None]
